FAERS Safety Report 15246414 (Version 2)
Quarter: 2018Q3

REPORT INFORMATION
  Report Type: Spontaneous
  Country: US (occurrence: US)
  Receive Date: 20180806
  Receipt Date: 20180901
  Transmission Date: 20181010
  Serious: No
  Sender: FDA-Public Use
  Company Number: PHEH2018US030527

PATIENT

DRUGS (1)
  1. CEFTRIAXONE. [Suspect]
     Active Substance: CEFTRIAXONE
     Indication: PRODUCT USED FOR UNKNOWN INDICATION
     Dosage: UNK (SOMETIMES ORDERED 700 MG OR 350 MG/ML)
     Route: 065

REACTIONS (2)
  - Product reconstitution quality issue [Unknown]
  - Incorrect dose administered [Unknown]
